FAERS Safety Report 6377910-1 (Version None)
Quarter: 2009Q3

REPORT INFORMATION
  Report Type: 
  Country: None (occurrence: None)
  Receive Date: 20090925
  Receipt Date: 20090915
  Transmission Date: 20100115
  Serious: Yes (Other)
  Sender: FDA-Public Use
  Company Number: PHHY2009BR39901

PATIENT
  Age: 44 Year
  Sex: Female

DRUGS (1)
  1. AREDIA [Suspect]
     Indication: MULTIPLE MYELOMA
     Dosage: 90MG INTO 250ML OF PHYSIOLOGIC SALINE SOLUTION WITH A 2 HOURS INFUSION
     Dates: start: 20090831, end: 20090831

REACTIONS (3)
  - BLISTER [None]
  - ERYTHEMA [None]
  - PRURITUS [None]
